FAERS Safety Report 6263866-9 (Version None)
Quarter: 2009Q3

REPORT INFORMATION
  Report Type: 
  Country: None (occurrence: None)
  Receive Date: 20090706
  Receipt Date: 20090706
  Transmission Date: 20100115
  Serious: No
  Sender: FDA-Public Use
  Company Number: None

PATIENT
  Age: 72 Year
  Sex: Female
  Weight: 90 kg

DRUGS (1)
  1. DONNATAL [Suspect]
     Indication: IRRITABLE BOWEL SYNDROME
     Dosage: 1 2 PERDAY ORAL
     Route: 048
     Dates: start: 20090623, end: 20090627

REACTIONS (2)
  - MEASLES [None]
  - URTICARIA [None]
